FAERS Safety Report 22088856 (Version 1)
Quarter: 2023Q1

REPORT INFORMATION
  Report Type: Spontaneous
  Country: US (occurrence: None)
  Receive Date: 20230310
  Receipt Date: 20230310
  Transmission Date: 20230418
  Serious: No
  Sender: FDA-Public Use
  Company Number: None

PATIENT
  Sex: 0

DRUGS (1)
  1. ROSUVASTATIN [Suspect]
     Active Substance: ROSUVASTATIN

REACTIONS (8)
  - Musculoskeletal stiffness [None]
  - Musculoskeletal stiffness [None]
  - Limb deformity [None]
  - Finger deformity [None]
  - Foot deformity [None]
  - Muscle spasms [None]
  - Muscle spasms [None]
  - Muscle spasms [None]
